FAERS Safety Report 4551022-1 (Version None)
Quarter: 2005Q1

REPORT INFORMATION
  Report Type: 
  Country: None (occurrence: None)
  Receive Date: 20050113
  Receipt Date: 20040128
  Transmission Date: 20050727
  Serious: No
  Sender: FDA-Public Use
  Company Number: US-BRISTOL-MYERS SQUIBB COMPANY-12490397

PATIENT
  Sex: Female

DRUGS (1)
  1. DESYREL [Suspect]
     Route: 048

REACTIONS (1)
  - RED BLOOD CELL COUNT INCREASED [None]
